FAERS Safety Report 17529452 (Version 1)
Quarter: 2020Q1

REPORT INFORMATION
  Report Type: Spontaneous
  Country: IR (occurrence: IR)
  Receive Date: 20200312
  Receipt Date: 20200312
  Transmission Date: 20200409
  Serious: Yes (Death, Hospitalization, Other)
  Sender: FDA-Public Use
  Company Number: IR-LUPIN PHARMACEUTICALS INC.-2020-01270

PATIENT
  Age: 91 Year
  Sex: Male

DRUGS (6)
  1. SULFAMETHOXAZOLE AND TRIMETHOPRIM [Suspect]
     Active Substance: SULFAMETHOXAZOLE\TRIMETHOPRIM
     Indication: MENINGITIS BACTERIAL
     Dosage: 15 MILLIGRAM/KILOGRAM, QD (IN THREE DIVIDED DOSES)
     Route: 042
  2. IMIPENEM [Suspect]
     Active Substance: IMIPENEM
     Indication: MENINGITIS BACTERIAL
     Dosage: 500 MILLIGRAM, QID
     Route: 042
  3. CEFTRIAXONE. [Suspect]
     Active Substance: CEFTRIAXONE
     Indication: MENINGITIS BACTERIAL
     Dosage: 2 GRAM, BID
     Route: 042
  4. VANCOMYCIN [Concomitant]
     Active Substance: VANCOMYCIN
     Indication: ANTIBIOTIC THERAPY
     Dosage: 30 MILLIGRAM/KILOGRAM, BID
     Route: 051
  5. ACYCLOVIR [ACICLOVIR] [Concomitant]
     Active Substance: ACYCLOVIR
     Indication: ANTIVIRAL TREATMENT
     Dosage: 10 MILLIGRAM/KILOGRAM, TID
     Route: 051
  6. DEXAMETHASONE. [Concomitant]
     Active Substance: DEXAMETHASONE
     Indication: ANTIBIOTIC THERAPY
     Dosage: 4 MILLIGRAM, TID
     Route: 051

REACTIONS (3)
  - Treatment failure [Fatal]
  - Pleural effusion [Unknown]
  - Lung infiltration [Unknown]
